FAERS Safety Report 8120339-6 (Version None)
Quarter: 2012Q1

REPORT INFORMATION
  Report Type: 
  Country: None (occurrence: None)
  Receive Date: 20120207
  Receipt Date: 20120201
  Transmission Date: 20120608
  Serious: Yes (Death)
  Sender: FDA-Public Use
  Company Number: US-GLAXOSMITHKLINE-A0959689A

PATIENT
  Age: 63 Year
  Sex: Female
  Weight: 62.3 kg

DRUGS (6)
  1. MICRO-K [Concomitant]
  2. XELODA [Concomitant]
  3. HERCEPTIN [Concomitant]
  4. TYKERB [Suspect]
     Indication: BREAST CANCER
     Dosage: 1250MG PER DAY
     Route: 048
     Dates: start: 20110518, end: 20110922
  5. LASIX [Concomitant]
  6. LOMOTIL [Concomitant]

REACTIONS (3)
  - ALANINE AMINOTRANSFERASE INCREASED [None]
  - ASPARTATE AMINOTRANSFERASE INCREASED [None]
  - BREAST CANCER METASTATIC [None]
